FAERS Safety Report 7028402-8 (Version None)
Quarter: 2010Q4

REPORT INFORMATION
  Report Type: 
  Country: None (occurrence: None)
  Receive Date: 20101005
  Receipt Date: 20100925
  Transmission Date: 20110411
  Serious: Yes (Hospitalization)
  Sender: FDA-Public Use
  Company Number: AT-ROCHE-729424

PATIENT
  Age: 68 Year
  Sex: Male

DRUGS (4)
  1. BEVACIZUMAB [Suspect]
     Dosage: DOSE LEVEL: 5.0 MG/KG
     Route: 042
     Dates: start: 20100414
  2. OXALIPLATIN [Suspect]
     Indication: COLORECTAL CANCER
     Dosage: (DAY 1,15)
     Route: 042
     Dates: start: 20100414, end: 20100901
  3. LEUCOVORIN CALCIUM [Suspect]
     Indication: COLORECTAL CANCER
     Dosage: (DAY 1,2,15 AND 16)
     Route: 042
     Dates: start: 20100414, end: 20100901
  4. FLUOROURACIL [Suspect]
     Indication: COLORECTAL CANCER
     Dosage: (DAY 1,2;15,16), 680 MG IV
     Route: 040
     Dates: start: 20100414, end: 20100901

REACTIONS (4)
  - DIARRHOEA [None]
  - GENERAL PHYSICAL HEALTH DETERIORATION [None]
  - NAUSEA [None]
  - VOMITING [None]
